FAERS Safety Report 6328617-8 (Version None)
Quarter: 2009Q3

REPORT INFORMATION
  Report Type: 
  Country: None (occurrence: None)
  Receive Date: 20090826
  Receipt Date: 20070522
  Transmission Date: 20100115
  Serious: Yes (Other)
  Sender: FDA-Public Use
  Company Number: US-ASTRAZENECA-2006UW11965

PATIENT
  Age: 16044 Day
  Sex: Female
  Weight: 151 kg

DRUGS (15)
  1. SEROQUEL [Suspect]
     Indication: DEPRESSION
     Route: 048
  2. SEROQUEL [Suspect]
     Indication: BIPOLAR DISORDER
     Route: 048
  3. SEROQUEL [Suspect]
     Indication: ANXIETY
     Route: 048
  4. SEROQUEL [Suspect]
     Dosage: 50-900 MG EVERY DAY
     Route: 048
     Dates: start: 20030730
  5. SEROQUEL [Suspect]
     Dosage: 50-900 MG EVERY DAY
     Route: 048
     Dates: start: 20030730
  6. SEROQUEL [Suspect]
     Dosage: 50-900 MG EVERY DAY
     Route: 048
     Dates: start: 20030730
  7. ZYPREXA [Suspect]
  8. ZOLOFT [Concomitant]
  9. COUMADIN [Concomitant]
     Dosage: 1-6 MG EVERY DAY
     Route: 048
     Dates: start: 20030821
  10. DEMADEX [Concomitant]
     Route: 048
     Dates: start: 20030113
  11. K-DUR [Concomitant]
     Dosage: 20-200 MEQ EVERY DAY
     Route: 048
     Dates: start: 20030113
  12. XANAX [Concomitant]
     Dosage: 2-6 MG EVERY DAY
     Route: 048
     Dates: start: 20030113
  13. ZESTRIL [Concomitant]
     Dates: start: 20061103
  14. TRILEPTAL [Concomitant]
     Route: 048
     Dates: start: 20061103
  15. TOPAMAX [Concomitant]
     Route: 048

REACTIONS (3)
  - DIABETES MELLITUS INADEQUATE CONTROL [None]
  - DIABETIC NEUROPATHY [None]
  - TYPE 2 DIABETES MELLITUS [None]
